FAERS Safety Report 10441093 (Version 1)
Quarter: 2014Q3

REPORT INFORMATION
  Report Type: Spontaneous
  Country: US (occurrence: None)
  Receive Date: 20140908
  Receipt Date: 20140908
  Transmission Date: 20150326
  Serious: Yes (Other)
  Sender: FDA-Public Use
  Company Number: None

PATIENT
  Age: 58 Year
  Sex: Female

DRUGS (1)
  1. BOTOX [Suspect]
     Active Substance: ONABOTULINUMTOXINA
     Indication: PRODUCT USED FOR UNKNOWN INDICATION
     Dosage: 200 UNITS Q3M IM
     Route: 030
     Dates: start: 20120405

REACTIONS (8)
  - Blood calcium decreased [None]
  - Blood magnesium decreased [None]
  - Influenza like illness [None]
  - Condition aggravated [None]
  - Pyrexia [None]
  - Myalgia [None]
  - Blood iron decreased [None]
  - Fatigue [None]
